FAERS Safety Report 7238686-9 (Version None)
Quarter: 2011Q1

REPORT INFORMATION
  Report Type: 
  Country: None (occurrence: None)
  Receive Date: 20110121
  Receipt Date: 20110111
  Transmission Date: 20110831
  Serious: Yes (Death, Hospitalization)
  Sender: FDA-Public Use
  Company Number: US-ACTELION-A-US2010-43209

PATIENT

DRUGS (1)
  1. ILOPROST INHALATION SOLUTION UNKNOWN US [Suspect]
     Indication: PULMONARY ARTERIAL HYPERTENSION
     Dosage: 10
     Route: 055
     Dates: start: 20101206, end: 20101209

REACTIONS (7)
  - ABDOMINAL PAIN [None]
  - VOMITING [None]
  - CARDIAC ARREST [None]
  - PYREXIA [None]
  - COR PULMONALE [None]
  - NAUSEA [None]
  - CHOLECYSTITIS ACUTE [None]
